FAERS Safety Report 8322066-9 (Version None)
Quarter: 2012Q2

REPORT INFORMATION
  Report Type: 
  Country: None (occurrence: None)
  Receive Date: 20120426
  Receipt Date: 20120417
  Transmission Date: 20120825
  Serious: Yes (Hospitalization)
  Sender: FDA-Public Use
  Company Number: 2012MA005149

PATIENT
  Age: 12 Year
  Sex: Male

DRUGS (2)
  1. FEVERALL [Suspect]
     Indication: PYREXIA
  2. CALPROFEN (NO PREF. NAME) [Suspect]
     Indication: PYREXIA

REACTIONS (1)
  - STEVENS-JOHNSON SYNDROME [None]
